FAERS Safety Report 23671493 (Version 1)
Quarter: 2024Q1

REPORT INFORMATION
  Report Type: Spontaneous
  Country: US (occurrence: US)
  Receive Date: 20240326
  Receipt Date: 20240326
  Transmission Date: 20240409
  Serious: No
  Sender: FDA-Public Use
  Company Number: US-SANOFI-01989321

PATIENT
  Age: 84 Year
  Sex: Male

DRUGS (1)
  1. LANTUS SOLOSTAR [Suspect]
     Active Substance: INSULIN GLARGINE
     Indication: Diabetes mellitus
     Dosage: 50 IU (SLIDING SCALE 40-50 UNITS), QD AND DRUG TREATMENT DURATION: 3 MONTHS

REACTIONS (1)
  - Hypoacusis [Unknown]
